FAERS Safety Report 5337212-9 (Version None)
Quarter: 2007Q2

REPORT INFORMATION
  Report Type: 
  Country: None (occurrence: None)
  Receive Date: 20070529
  Receipt Date: 20070523
  Transmission Date: 20071010
  Serious: Yes (Other)
  Sender: FDA-Public Use
  Company Number: A0652616A

PATIENT
  Age: 34 Year
  Sex: Male

DRUGS (6)
  1. LAMICTAL [Suspect]
     Route: 048
     Dates: start: 20070502
  2. BACLOFEN [Concomitant]
     Route: 037
  3. LEXAPRO [Concomitant]
  4. AMANTADINE HCL [Concomitant]
  5. TRAZODONE HCL [Concomitant]
  6. KEPPRA [Concomitant]

REACTIONS (7)
  - BLOOD GLUCOSE INCREASED [None]
  - CARBON DIOXIDE INCREASED [None]
  - ERYTHEMA [None]
  - RASH [None]
  - RASH MACULAR [None]
  - THERAPEUTIC RESPONSE UNEXPECTED [None]
  - THROMBOCYTHAEMIA [None]
